FAERS Safety Report 9291188 (Version 1)
Quarter: 2013Q2

REPORT INFORMATION
  Report Type: Spontaneous
  Country: DE (occurrence: DE)
  Receive Date: 20130515
  Receipt Date: 20130515
  Transmission Date: 20140414
  Serious: Yes (Other)
  Sender: FDA-Public Use
  Company Number: GXKR2013DE001815

PATIENT
  Sex: Female

DRUGS (2)
  1. RAMIPRIL 1A PHARMA [Suspect]
     Dosage: 5 MG, QD
     Route: 048
     Dates: start: 20130502
  2. JODID 100 [Concomitant]

REACTIONS (3)
  - Muscle spasms [Recovered/Resolved]
  - Chills [Recovered/Resolved]
  - Feeling cold [None]
